FAERS Safety Report 24267523 (Version 1)
Quarter: 2024Q3

REPORT INFORMATION
  Report Type: Spontaneous
  Country: ES (occurrence: ES)
  Receive Date: 20240830
  Receipt Date: 20240830
  Transmission Date: 20241017
  Serious: Yes (Life-Threatening, Other)
  Sender: RANBAXY
  Company Number: ES-SUN PHARMACEUTICAL INDUSTRIES LTD-2024RR-465493

PATIENT
  Age: 17 Year
  Sex: Female

DRUGS (1)
  1. ACETAMINOPHEN [Suspect]
     Active Substance: ACETAMINOPHEN
     Indication: Product used for unknown indication
     Dosage: 10 COMPRIMATES OF 1G
     Route: 065
     Dates: start: 20240523

REACTIONS (3)
  - Drug-induced liver injury [Unknown]
  - Suicide attempt [Unknown]
  - Vomiting [Unknown]

NARRATIVE: CASE EVENT DATE: 20240523
